FAERS Safety Report 15738700 (Version 1)
Quarter: 2018Q4

REPORT INFORMATION
  Report Type: Report from Study
  Country: None (occurrence: JP)
  Receive Date: 20181219
  Receipt Date: 20181219
  Transmission Date: 20190205
  Serious: Yes (Life-Threatening, Other)
  Sender: FDA-Public Use
  Company Number: JP-BAUSCH-BL-2018-035175

PATIENT
  Age: 2 Year
  Sex: Male

DRUGS (13)
  1. DEXAMETHASONE. [Suspect]
     Active Substance: DEXAMETHASONE
     Dosage: ORAL CORTICOSTEROID WAS GRADUALLY TAPERED FOR 6 MONTHS
     Route: 048
  2. PREDNISONE. [Suspect]
     Active Substance: PREDNISONE
     Indication: ACUTE MYELOID LEUKAEMIA
     Dosage: ORAL CORTICOSTEROID WAS GRADUALLY TAPERED FOR 6 MONTHS
     Route: 048
  3. HYDROCORTISONE. [Suspect]
     Active Substance: HYDROCORTISONE
     Indication: ACUTE MYELOID LEUKAEMIA
  4. METHOTREXATE. [Concomitant]
     Active Substance: METHOTREXATE
     Indication: ACUTE MYELOID LEUKAEMIA
  5. METHYLPREDNISOLONE. [Suspect]
     Active Substance: METHYLPREDNISOLONE
     Dosage: TWO COURSES OF METHYL PREDNISONE PULSE
     Route: 048
  6. CYTARABINE. [Concomitant]
     Active Substance: CYTARABINE
     Indication: ACUTE MYELOID LEUKAEMIA
  7. DEXAMETHASONE. [Suspect]
     Active Substance: DEXAMETHASONE
     Indication: ACUTE MYELOID LEUKAEMIA
     Dosage: HIGH-DOSE
     Route: 048
  8. PREDNISONE. [Suspect]
     Active Substance: PREDNISONE
     Dosage: HIGH-DOSE
     Route: 048
  9. HYDROCORTISONE. [Suspect]
     Active Substance: HYDROCORTISONE
     Indication: PROPHYLAXIS
     Dosage: 4 CYCLICAL
     Route: 037
  10. METHYLPREDNISOLONE. [Suspect]
     Active Substance: METHYLPREDNISOLONE
     Indication: ACUTE MYELOID LEUKAEMIA
     Dosage: ORAL CORTICOSTEROID WAS GRADUALLY TAPERED FOR 6 MONTHS
     Route: 048
  11. METHYLPREDNISOLONE. [Suspect]
     Active Substance: METHYLPREDNISOLONE
     Indication: CHRONIC GRAFT VERSUS HOST DISEASE
     Dosage: HIGH-DOSE
     Route: 048
  12. METHOTREXATE. [Concomitant]
     Active Substance: METHOTREXATE
     Indication: PROPHYLAXIS
     Dosage: 4 CYCLICAL
     Route: 037
  13. CYTARABINE. [Concomitant]
     Active Substance: CYTARABINE
     Indication: PROPHYLAXIS
     Dosage: 4 CYCLICAL
     Route: 037

REACTIONS (5)
  - Adrenal insufficiency [Recovering/Resolving]
  - Respiratory tract infection [Recovering/Resolving]
  - Adrenocortical insufficiency acute [Recovering/Resolving]
  - Hypothalamo-pituitary disorder [Recovering/Resolving]
  - Gastroenteritis viral [Recovering/Resolving]
